FAERS Safety Report 25716077 (Version 2)
Quarter: 2025Q3

REPORT INFORMATION
  Report Type: Report from Study
  Country: US (occurrence: US)
  Receive Date: 20250822
  Receipt Date: 20250908
  Transmission Date: 20251021
  Serious: Yes (Hospitalization, Other)
  Sender: BAYER HEALTHCARE PHARMACEUTICALS INC.
  Company Number: US-BAYER-2025A110238

PATIENT
  Age: 74 Year
  Sex: Male

DRUGS (1)
  1. STIVARGA [Suspect]
     Active Substance: REGORAFENIB MONOHYDRATE
     Indication: Colon cancer metastatic
     Dosage: 80 MG, QD
     Dates: start: 20250805, end: 2025

REACTIONS (5)
  - Pneumonia [Unknown]
  - White blood cell count increased [Unknown]
  - Hepatic enzyme increased [Unknown]
  - Product use issue [None]
  - Colon cancer metastatic [None]

NARRATIVE: CASE EVENT DATE: 20250101
